FAERS Safety Report 25963507 (Version 1)
Quarter: 2025Q4

REPORT INFORMATION
  Report Type: Spontaneous
  Country: US (occurrence: None)
  Receive Date: 20251024
  Receipt Date: 20251024
  Transmission Date: 20260117
  Serious: Yes (Hospitalization)
  Sender: FDA-CTU
  Company Number: None

PATIENT
  Sex: Female

DRUGS (2)
  1. TABRECTA [Suspect]
     Active Substance: CAPMATINIB
     Indication: Lung carcinoma cell type unspecified stage 0
     Dosage: FREQUENCY : TWICE A DAY;?
     Route: 048
     Dates: start: 20250515
  2. BUMETANIDE [Concomitant]
     Active Substance: BUMETANIDE

REACTIONS (3)
  - Peripheral swelling [None]
  - Arthralgia [None]
  - Weight fluctuation [None]
